FAERS Safety Report 8670003 (Version 3)
Quarter: 2012Q4

REPORT INFORMATION
  Report Type: 
  Country: AU (occurrence: AU)
  Receive Date: 20120718
  Receipt Date: 20120828
  Transmission Date: 20130627
  Serious: Yes (Other)
  Sender: FDA-Public Use
  Company Number: AU-PFIZER INC-2012166992

PATIENT
  Sex: Female
  Weight: 70 kg

DRUGS (2)
  1. REVATIO [Suspect]
     Indication: PULMONARY HYPERTENSION
     Dosage: 20 mg, 3x/day
     Route: 048
  2. PREDNISOLONE [Concomitant]
     Indication: IDIOPATHIC PULMONARY FIBROSIS
     Dosage: 10 mg, 1x/day
     Route: 048

REACTIONS (2)
  - Dyspnoea [Recovered/Resolved]
  - Tachyphylaxis [Unknown]
